FAERS Safety Report 16033452 (Version 1)
Quarter: 2019Q1

REPORT INFORMATION
  Report Type: Spontaneous
  Country: US (occurrence: US)
  Receive Date: 20190305
  Receipt Date: 20190305
  Transmission Date: 20190418
  Serious: No
  Sender: FDA-Public Use
  Company Number: US-PRINSTON PHARMACEUTICAL INC.-2019PRN00102

PATIENT
  Age: 60 Year
  Sex: Female

DRUGS (1)
  1. DULOXETINE. [Suspect]
     Active Substance: DULOXETINE
     Indication: DEPRESSION
     Dosage: 60 MG, 2X/DAY
     Route: 048
     Dates: start: 20181224

REACTIONS (13)
  - Depressed mood [Not Recovered/Not Resolved]
  - Micturition urgency [Recovered/Resolved]
  - Speech disorder [Not Recovered/Not Resolved]
  - Glycosylated haemoglobin increased [Unknown]
  - Malaise [Recovered/Resolved]
  - Pollakiuria [Recovered/Resolved]
  - Dysuria [Recovered/Resolved]
  - Chest pain [Recovered/Resolved]
  - Abdominal pain [Recovered/Resolved]
  - Blood triglycerides increased [Unknown]
  - Nausea [Recovered/Resolved]
  - Product substitution issue [Recovered/Resolved]
  - Urinary retention [Recovered/Resolved]

NARRATIVE: CASE EVENT DATE: 201812
